FAERS Safety Report 25917264 (Version 1)
Quarter: 2025Q4

REPORT INFORMATION
  Report Type: Spontaneous
  Country: CN (occurrence: CN)
  Receive Date: 20251014
  Receipt Date: 20251014
  Transmission Date: 20260118
  Serious: Yes (Hospitalization, Other)
  Sender: Haleon PLC
  Company Number: CN-HALEON-2265617

PATIENT
  Age: 113 Month
  Sex: Male

DRUGS (4)
  1. IBUPROFEN [Interacting]
     Active Substance: IBUPROFEN
     Indication: Pyrexia
     Dates: start: 20230422
  2. CEFIXIME [Interacting]
     Active Substance: CEFIXIME
     Indication: Pyrexia
     Route: 048
     Dates: start: 20230422
  3. CEFTRIAXONE [Suspect]
     Active Substance: CEFTRIAXONE
     Indication: Anti-infective therapy
     Dates: end: 20230426
  4. CEFTRIAXONE [Suspect]
     Active Substance: CEFTRIAXONE
     Indication: Tonsillitis

REACTIONS (33)
  - Toxic epidermal necrolysis [Recovered/Resolved]
  - Mucosal inflammation [Recovered/Resolved]
  - Tonsillitis [Recovered/Resolved]
  - Macule [Recovered/Resolved]
  - Erythema [Recovered/Resolved]
  - Oral disorder [Recovered/Resolved]
  - Dry skin [Recovered/Resolved]
  - Mucosal disorder [Recovered/Resolved]
  - Target skin lesion [Recovered/Resolved]
  - Skin disorder [Recovered/Resolved]
  - Blister [Recovered/Resolved]
  - Condition aggravated [Recovered/Resolved]
  - Skin injury [Recovered/Resolved]
  - Tonsillar hypertrophy [Recovered/Resolved]
  - Skin weeping [Recovered/Resolved]
  - Rash [Recovered/Resolved]
  - Drug interaction [Unknown]
  - Anaphylactic reaction [Recovered/Resolved]
  - Flushing [Recovered/Resolved]
  - Dysphonia [Recovered/Resolved]
  - Genital lesion [Recovered/Resolved]
  - Lymphadenopathy [Recovered/Resolved]
  - Papule [Recovered/Resolved]
  - Skin ulcer [Recovered/Resolved]
  - Genital ulceration [Recovered/Resolved]
  - Livedo reticularis [Recovered/Resolved]
  - Skin lesion [Recovered/Resolved]
  - Face oedema [Recovered/Resolved]
  - Scab [Recovered/Resolved]
  - Mouth ulceration [Recovered/Resolved]
  - Skin exfoliation [Recovered/Resolved]
  - Rash maculo-papular [Recovered/Resolved]
  - Pyrexia [Recovered/Resolved]

NARRATIVE: CASE EVENT DATE: 20230422
